FAERS Safety Report 14362959 (Version 2)
Quarter: 2018Q1

REPORT INFORMATION
  Report Type: Spontaneous
  Country: US (occurrence: US)
  Receive Date: 20180108
  Receipt Date: 20180223
  Transmission Date: 20180509
  Serious: No
  Sender: FDA-Public Use
  Company Number: US-JNJFOC-20171238811

PATIENT
  Age: 22 Year
  Sex: Female
  Weight: 58.97 kg

DRUGS (2)
  1. STELARA [Suspect]
     Active Substance: USTEKINUMAB
     Indication: PSORIASIS
     Route: 058
     Dates: start: 201712
  2. EPIDUO [Concomitant]
     Active Substance: ADAPALENE\BENZOYL PEROXIDE
     Indication: ACNE
     Route: 061
     Dates: start: 2014

REACTIONS (3)
  - Product label issue [Unknown]
  - Needle issue [Unknown]
  - Underdose [Unknown]

NARRATIVE: CASE EVENT DATE: 201712
